FAERS Safety Report 10027689 (Version 2)
Quarter: 2014Q1

REPORT INFORMATION
  Report Type: Report from Study
  Country: UG (occurrence: UG)
  Receive Date: 20140321
  Receipt Date: 20140321
  Transmission Date: 20141002
  Serious: Yes (Death)
  Sender: FDA-Public Use
  Company Number: UG-ABBVIE-11P-165-0875725-00

PATIENT
  Age: 35 Year
  Sex: Male

DRUGS (3)
  1. ALUVIA TABLETS [Suspect]
     Indication: HIV INFECTION
     Route: 048
     Dates: start: 20110628, end: 20110904
  2. TENOFOVIR [Concomitant]
     Indication: PRODUCT USED FOR UNKNOWN INDICATION
     Dates: start: 20110628, end: 20110904
  3. SEPTRIN [Concomitant]
     Indication: PRODUCT USED FOR UNKNOWN INDICATION
     Dates: start: 20110628, end: 20110904

REACTIONS (3)
  - Decreased appetite [Fatal]
  - Generalised oedema [Fatal]
  - Diarrhoea [Fatal]
